FAERS Safety Report 13667567 (Version 1)
Quarter: 2017Q2

REPORT INFORMATION
  Report Type: Spontaneous
  Country: US (occurrence: US)
  Receive Date: 20170619
  Receipt Date: 20170619
  Transmission Date: 20170830
  Serious: No
  Sender: FDA-Public Use
  Company Number: None

PATIENT
  Sex: Female

DRUGS (1)
  1. HUMIRA [Suspect]
     Active Substance: ADALIMUMAB
     Route: 030
     Dates: start: 20170425

REACTIONS (4)
  - Abdominal pain upper [None]
  - Diarrhoea [None]
  - Arthralgia [None]
  - Weight decreased [None]

NARRATIVE: CASE EVENT DATE: 20170528
